FAERS Safety Report 21458570 (Version 2)
Quarter: 2023Q4

REPORT INFORMATION
  Report Type: Report from Study
  Country: US (occurrence: US)
  Receive Date: 20221014
  Receipt Date: 20231006
  Transmission Date: 20240110
  Serious: Yes (Hospitalization, Other)
  Sender: FDA-Public Use
  Company Number: US-UCBSA-2022059645

PATIENT
  Sex: Male

DRUGS (1)
  1. BRIVARACETAM [Suspect]
     Active Substance: BRIVARACETAM
     Indication: Seizure
     Dosage: 100 MILLIGRAM, 2X/DAY (BID)

REACTIONS (3)
  - Brain neoplasm malignant [Not Recovered/Not Resolved]
  - Hospitalisation [Not Recovered/Not Resolved]
  - Endotracheal intubation [Not Recovered/Not Resolved]

NARRATIVE: CASE EVENT DATE: 20230101
